FAERS Safety Report 9773618 (Version 1)
Quarter: 2013Q4

REPORT INFORMATION
  Report Type: Spontaneous
  Country: US (occurrence: US)
  Receive Date: 20131219
  Receipt Date: 20131219
  Transmission Date: 20140711
  Serious: No
  Sender: FDA-Public Use
  Company Number: US-MYLANLABS-2013S1005480

PATIENT
  Age: 62 Year
  Sex: Female

DRUGS (1)
  1. FLURAZEPAM HYDROCHLORIDE CAPSULES, USP [Suspect]
     Indication: INSOMNIA
     Route: 048
     Dates: start: 201302

REACTIONS (2)
  - Somnolence [Not Recovered/Not Resolved]
  - Amnesia [Not Recovered/Not Resolved]
